FAERS Safety Report 14175970 (Version 1)
Quarter: 2017Q4

REPORT INFORMATION
  Report Type: Spontaneous
  Country: US (occurrence: None)
  Receive Date: 20171109
  Receipt Date: 20171109
  Transmission Date: 20180321
  Serious: Yes (Hospitalization)
  Sender: FDA-Public Use
  Company Number: None

PATIENT
  Age: 68 Year
  Sex: Male
  Weight: 78.74 kg

DRUGS (1)
  1. ELBASVIR/GRAZOPREVIR [Suspect]
     Active Substance: ELBASVIR\GRAZOPREVIR
     Indication: HEPATITIS C
     Dosage: DOSE - 50/100 MG
     Route: 048
     Dates: start: 20170503, end: 20170726

REACTIONS (8)
  - Loss of consciousness [None]
  - Dizziness [None]
  - Cold sweat [None]
  - Asthenia [None]
  - Visual impairment [None]
  - Atrial fibrillation [None]
  - Palpitations [None]
  - Hypotension [None]

NARRATIVE: CASE EVENT DATE: 20170620
